FAERS Safety Report 11122511 (Version 1)
Quarter: 2015Q2

REPORT INFORMATION
  Report Type: Spontaneous
  Country: US (occurrence: US)
  Receive Date: 20150519
  Receipt Date: 20150519
  Transmission Date: 20150821
  Serious: No
  Sender: FDA-Public Use
  Company Number: US-BAUSCH-BL-2014-009765

PATIENT
  Sex: Female

DRUGS (1)
  1. MYSOLINE [Suspect]
     Active Substance: PRIMIDONE
     Indication: EPILEPSY
     Route: 048

REACTIONS (2)
  - Drug level increased [Not Recovered/Not Resolved]
  - Urticaria [Not Recovered/Not Resolved]

NARRATIVE: CASE EVENT DATE: 2014
